FAERS Safety Report 16844771 (Version 2)
Quarter: 2019Q4

REPORT INFORMATION
  Report Type: Report from Study
  Country: AU (occurrence: AU)
  Receive Date: 20190924
  Receipt Date: 20191122
  Transmission Date: 20200122
  Serious: Yes (Other)
  Sender: FDA-Public Use
  Company Number: PHHY2019AU220204

PATIENT
  Sex: Female

DRUGS (2)
  1. MICARDIS [Concomitant]
     Active Substance: TELMISARTAN
     Indication: HYPERTENSION
     Dosage: 40 MG, QD
     Route: 065
  2. ACLASTA [Suspect]
     Active Substance: ZOLEDRONIC ACID
     Indication: OSTEOPOROSIS
     Dosage: 5 MG
     Route: 042

REACTIONS (12)
  - Influenza like illness [Unknown]
  - Eye swelling [Unknown]
  - Breast cancer [Unknown]
  - Deafness bilateral [Unknown]
  - Photophobia [Unknown]
  - Chills [Unknown]
  - Eye pain [Unknown]
  - Feeling of body temperature change [Unknown]
  - Affective disorder [Unknown]
  - Visual acuity reduced [Unknown]
  - Eye inflammation [Unknown]
  - Ocular hyperaemia [Unknown]
